FAERS Safety Report 16456867 (Version 1)
Quarter: 2019Q3

REPORT INFORMATION
  Report Type: Spontaneous
  Country: US (occurrence: US)
  Receive Date: 20190619
  Receipt Date: 20190619
  Transmission Date: 20191004
  Serious: Yes (Other)
  Sender: FDA-Public Use
  Company Number: None

PATIENT
  Age: 63 Year
  Sex: Male
  Weight: 87.75 kg

DRUGS (10)
  1. SPIRIVA [Concomitant]
     Active Substance: TIOTROPIUM BROMIDE MONOHYDRATE
  2. VITAMIN A [Concomitant]
     Active Substance: VITAMIN A
  3. METFORMIN [Concomitant]
     Active Substance: METFORMIN HYDROCHLORIDE
  4. MULTI VITAMIN [Concomitant]
     Active Substance: VITAMINS
  5. ASPERIN [Concomitant]
  6. GROUND FLAX SEED [Concomitant]
  7. FISH OIL [Concomitant]
     Active Substance: FISH OIL
  8. SOLCO HEALTHCARE U.S., LOSARTAN POTASSIUM TABLETS, USP NDC 43547-361-0 [Suspect]
     Active Substance: LOSARTAN POTASSIUM
     Indication: HYPERTENSION
     Dosage: ?          QUANTITY:1 TABLET(S);?
     Route: 048
     Dates: start: 20190614, end: 20190616
  9. SYMBICORT [Concomitant]
     Active Substance: BUDESONIDE\FORMOTEROL FUMARATE DIHYDRATE
  10. FAMATODINE [Concomitant]
     Active Substance: FAMOTIDINE

REACTIONS (4)
  - Hypertension [None]
  - Product quality issue [None]
  - Product substitution issue [None]
  - Paradoxical drug reaction [None]

NARRATIVE: CASE EVENT DATE: 20190616
